FAERS Safety Report 18074452 (Version 2)
Quarter: 2020Q3

REPORT INFORMATION
  Report Type: Spontaneous
  Country: PL (occurrence: PL)
  Receive Date: 20200727
  Receipt Date: 20200825
  Transmission Date: 20201103
  Serious: Yes (Other)
  Sender: FDA-Public Use
  Company Number: PL-SA-2020SA188774

PATIENT

DRUGS (7)
  1. FLUOROURACIL. [Suspect]
     Active Substance: FLUOROURACIL
     Indication: COLORECTAL CANCER METASTATIC
     Dosage: UNK UNK, QCY
     Dates: start: 201412, end: 201511
  2. FOLINIC ACID [Suspect]
     Active Substance: LEUCOVORIN
     Dosage: FOLFIRI REGIMEN
     Dates: start: 201409
  3. OXALIPLATIN. [Suspect]
     Active Substance: OXALIPLATIN
     Indication: COLORECTAL CANCER METASTATIC
     Dosage: UNK UNK, QCY
     Dates: start: 201412, end: 201511
  4. IRINOTECAN [Concomitant]
     Active Substance: IRINOTECAN
     Indication: COLORECTAL CANCER METASTATIC
     Dosage: FOLFIRI  REGIMEN
     Dates: start: 201409
  5. BEVACIZUMAB. [Suspect]
     Active Substance: BEVACIZUMAB
     Indication: COLORECTAL CANCER METASTATIC
     Dosage: UNK UNK, QCY
     Dates: start: 201412, end: 201511
  6. FLUOROURACIL. [Suspect]
     Active Substance: FLUOROURACIL
     Dosage: FOLFIRI REGIMEN
     Dates: start: 201409
  7. FOLINIC ACID [Suspect]
     Active Substance: LEUCOVORIN
     Indication: COLORECTAL CANCER METASTATIC
     Dosage: UNK, QCY
     Dates: start: 201412, end: 201511

REACTIONS (3)
  - Polyneuropathy [Not Recovered/Not Resolved]
  - Neutropenia [Recovered/Resolved]
  - Proteinuria [Unknown]

NARRATIVE: CASE EVENT DATE: 201511
